FAERS Safety Report 19955444 (Version 2)
Quarter: 2021Q4

REPORT INFORMATION
  Report Type: Report from Study
  Country: JP (occurrence: JP)
  Receive Date: 20211014
  Receipt Date: 20211108
  Transmission Date: 20220303
  Serious: Yes (Death)
  Sender: FDA-Public Use
  Company Number: JP-PFIZER INC-202101355693

PATIENT
  Age: 83 Year
  Sex: Male
  Weight: 66 kg

DRUGS (9)
  1. VYNDAQEL [Suspect]
     Active Substance: TAFAMIDIS MEGLUMINE
     Indication: Cardiac amyloidosis
     Dosage: 80 MG, 1X/DAY
     Dates: start: 20201202, end: 20210801
  2. TRICHLORMETHIAZIDE [Concomitant]
     Active Substance: TRICHLORMETHIAZIDE
     Indication: Cardiac failure
     Dosage: UNK
     Route: 048
     Dates: start: 20200701, end: 20210801
  3. AZOSEMIDE [Concomitant]
     Active Substance: AZOSEMIDE
     Indication: Cardiac failure
     Dosage: UNK
     Route: 048
     Dates: start: 20180401, end: 20210810
  4. SPIRONOLACTONE [Concomitant]
     Active Substance: SPIRONOLACTONE
     Indication: Cardiac failure
     Dosage: UNK
     Route: 048
     Dates: start: 20180701, end: 20210810
  5. ELIQUIS [Concomitant]
     Active Substance: APIXABAN
     Indication: Atrial fibrillation
     Dosage: UNK
     Route: 048
     Dates: start: 20160314, end: 20210810
  6. METHYLCOBALAMIN [Concomitant]
     Active Substance: METHYLCOBALAMIN
     Indication: Spinal stenosis
     Dosage: UNK
     Route: 048
     Dates: start: 20180701, end: 20210810
  7. NEXIUM [ESOMEPRAZOLE MAGNESIUM TRIHYDRATE] [Concomitant]
     Indication: Prophylaxis against gastrointestinal ulcer
     Dosage: UNK
     Route: 048
     Dates: start: 20160314, end: 20210810
  8. FEBUXOSTAT [Concomitant]
     Active Substance: FEBUXOSTAT
     Indication: Hyperuricaemia
     Dosage: UNK
     Route: 048
     Dates: start: 20180701, end: 20210810
  9. FEBUXOSTAT [Concomitant]
     Active Substance: FEBUXOSTAT
     Indication: Gout

REACTIONS (5)
  - Cardiac failure [Fatal]
  - Low cardiac output syndrome [Fatal]
  - Multiple organ dysfunction syndrome [Fatal]
  - Pulmonary oedema [Fatal]
  - Hypoxia [Fatal]

NARRATIVE: CASE EVENT DATE: 20210701
